FAERS Safety Report 6576576-5 (Version None)
Quarter: 2010Q1

REPORT INFORMATION
  Report Type: 
  Country: None (occurrence: None)
  Receive Date: 20100210
  Receipt Date: 20100201
  Transmission Date: 20100710
  Serious: Yes (Congenital Anomaly)
  Sender: FDA-Public Use
  Company Number: FR-ASTRAZENECA-2010SE05309

PATIENT
  Age: 0 Week

DRUGS (3)
  1. TENORMIN [Suspect]
     Route: 064
  2. PROGRAF [Suspect]
     Route: 064
  3. IMUREL [Suspect]
     Route: 064

REACTIONS (2)
  - CONGENITAL BLADDER ANOMALY [None]
  - MATERNAL DRUGS AFFECTING FOETUS [None]
